FAERS Safety Report 18208176 (Version 1)
Quarter: 2020Q3

REPORT INFORMATION
  Report Type: Spontaneous
  Country: GB (occurrence: GB)
  Receive Date: 20200828
  Receipt Date: 20200828
  Transmission Date: 20201103
  Serious: Yes (Other)
  Sender: FDA-Public Use
  Company Number: GB-PFIZER INC-2020333914

PATIENT
  Age: 76 Year
  Sex: Male
  Weight: 74 kg

DRUGS (1)
  1. ZESSLY [Suspect]
     Active Substance: INFLIXIMAB
     Indication: COLITIS ULCERATIVE
     Dosage: 400 MG, 1X/DAY
     Route: 042
     Dates: start: 20200731, end: 20200731

REACTIONS (3)
  - Drug hypersensitivity [Recovered/Resolved]
  - Malaise [Recovered/Resolved]
  - Unresponsive to stimuli [Recovered/Resolved]

NARRATIVE: CASE EVENT DATE: 20200731
